FAERS Safety Report 4692983-X (Version None)
Quarter: 2005Q2

REPORT INFORMATION
  Report Type: 
  Country: None (occurrence: None)
  Receive Date: 20050223
  Receipt Date: 20050223
  Transmission Date: 20051028
  Serious: Yes (Other)
  Sender: FDA-Public Use
  Company Number: None

PATIENT
  Age: 66 Year
  Sex: Female

DRUGS (5)
  1. PENTOXIFYLLINE [Suspect]
     Indication: PERIPHERAL OCCLUSIVE DISEASE
     Dosage: 400 MG PO BID
     Route: 048
  2. PENTOXIFYLLINE [Suspect]
     Indication: POLYARTERITIS NODOSA
     Dosage: 400 MG PO BID
     Route: 048
  3. PROPRANOLOL [Concomitant]
  4. ALPRAZOLAM [Concomitant]
  5. DAPSONE [Concomitant]

REACTIONS (3)
  - ABDOMINAL DISCOMFORT [None]
  - DRUG EFFECT DECREASED [None]
  - THERAPEUTIC RESPONSE UNEXPECTED WITH DRUG SUBSTITUTION [None]
